FAERS Safety Report 7313991-6 (Version None)
Quarter: 2011Q1

REPORT INFORMATION
  Report Type: 
  Country: None (occurrence: None)
  Receive Date: 20110225
  Receipt Date: 20110215
  Transmission Date: 20110831
  Serious: Yes (Other)
  Sender: FDA-Public Use
  Company Number: US-AMGEN-USASP2011009161

PATIENT
  Age: 39 Year
  Sex: Female

DRUGS (3)
  1. CELEBREX [Concomitant]
  2. ENBREL [Suspect]
     Indication: RHEUMATOID ARTHRITIS
     Dosage: 50 MG, QWK
     Dates: start: 20110125
  3. LEXAPRO [Concomitant]

REACTIONS (2)
  - TREMOR [None]
  - PALPITATIONS [None]
